FAERS Safety Report 4582386-0 (Version None)
Quarter: 2005Q1

REPORT INFORMATION
  Report Type: 
  Country: None (occurrence: None)
  Receive Date: 20050119
  Receipt Date: 20040213
  Transmission Date: 20050727
  Serious: Yes (Other)
  Sender: FDA-Public Use
  Company Number: US-JNJFOC-20040102810

PATIENT
  Age: 64 Year
  Sex: Female
  Weight: 80.2867 kg

DRUGS (6)
  1. DOXIL [Suspect]
     Indication: BREAST CANCER METASTATIC
     Dosage: 75 MG, INTRAVENOUS
     Route: 042
     Dates: start: 20030926, end: 20031124
  2. BENADRYL (   ) DIPHENYDRAMINE HYDROCHLORIDE [Concomitant]
  3. DECADRON [Concomitant]
  4. PEPCID [Concomitant]
  5. ATIVAN (ANASTROZOLE) TABLETS [Concomitant]
  6. PREVACID (LANSOPRAZOLE) TABLETS [Concomitant]

REACTIONS (3)
  - DISEASE PROGRESSION [None]
  - LIVER FUNCTION TEST ABNORMAL [None]
  - SKIN HYPERPIGMENTATION [None]
